FAERS Safety Report 7057191-6 (Version None)
Quarter: 2010Q4

REPORT INFORMATION
  Report Type: 
  Country: None (occurrence: None)
  Receive Date: 20101021
  Receipt Date: 20101021
  Transmission Date: 20110411
  Serious: No
  Sender: FDA-Public Use
  Company Number: None

PATIENT
  Sex: Male
  Weight: 58.9 kg

DRUGS (6)
  1. DAUNORUBICIN HCL [Suspect]
     Dosage: 179 MG
     Dates: end: 20101004
  2. METHOTREXATE [Suspect]
     Dosage: 15 MG
     Dates: end: 20100920
  3. PEG-L-ASPARAGINASE (PEGASPARGASE, ONCOSPAR) [Suspect]
     Dosage: 4725 IU
     Dates: end: 20100916
  4. PREDNISONE [Suspect]
     Dosage: 2530 MG
     Dates: end: 20101005
  5. VINCRISTINE SULFATE [Suspect]
     Dosage: 8 MG
     Dates: end: 20101004
  6. CYTARABINE [Suspect]
     Dosage: 70 MG
     Dates: end: 20100912

REACTIONS (3)
  - BLOOD GLUCOSE INCREASED [None]
  - HYPERBILIRUBINAEMIA [None]
  - INCORRECT DOSE ADMINISTERED [None]
